FAERS Safety Report 15124699 (Version 1)
Quarter: 2018Q3

REPORT INFORMATION
  Report Type: Spontaneous
  Country: US (occurrence: US)
  Receive Date: 20180704
  Receipt Date: 20180704
  Transmission Date: 20181010
  Serious: No
  Sender: FDA-Public Use
  Company Number: None

PATIENT
  Age: 12 Year
  Sex: Male

DRUGS (1)
  1. SYMDEKO [Suspect]
     Active Substance: IVACAFTOR\TEZACAFTOR
     Route: 048
     Dates: start: 20180620, end: 20180704

REACTIONS (3)
  - Headache [None]
  - Pruritus [None]
  - Drug dose omission [None]

NARRATIVE: CASE EVENT DATE: 20180620
